FAERS Safety Report 4518981-4 (Version None)
Quarter: 2004Q4

REPORT INFORMATION
  Report Type: 
  Country: None (occurrence: None)
  Receive Date: 20041203
  Receipt Date: 20041203
  Transmission Date: 20050328
  Serious: No
  Sender: FDA-Public Use
  Company Number: None

PATIENT
  Sex: Male
  Weight: 123 kg

DRUGS (12)
  1. LIPITOR [Suspect]
     Indication: HYPERLIPIDAEMIA
     Dosage: 40MG  QHS ORAL
     Route: 048
     Dates: start: 20040816, end: 20041020
  2. NITROGLYCERIN [Concomitant]
  3. LISINOPRIL [Concomitant]
  4. ATIVAN [Concomitant]
  5. PRAZOSIN HCL [Concomitant]
  6. TRAZODONE [Concomitant]
  7. EFFEXOR XR [Concomitant]
  8. OMEGA-3 [Concomitant]
  9. M.V.I. [Concomitant]
  10. ALPHAGAN P [Concomitant]
  11. LUMIGAN [Concomitant]
  12. METOPROLOL [Concomitant]

REACTIONS (3)
  - ASPARTATE AMINOTRANSFERASE INCREASED [None]
  - BLOOD CREATINE PHOSPHOKINASE INCREASED [None]
  - MYALGIA [None]
